FAERS Safety Report 12346687 (Version 1)
Quarter: 2016Q2

REPORT INFORMATION
  Report Type: Spontaneous
  Country: US (occurrence: None)
  Receive Date: 20160506
  Receipt Date: 20160506
  Transmission Date: 20160815
  Serious: Yes (Disabling, Other)
  Sender: FDA-Public Use
  Company Number: None

PATIENT
  Age: 15 Year
  Sex: Female
  Weight: 49.9 kg

DRUGS (1)
  1. MONTELUKAST [Suspect]
     Active Substance: MONTELUKAST SODIUM
     Indication: HYPERSENSITIVITY
     Dosage: IN THE MORNING TAKEN BY MOUTH
     Route: 048
     Dates: start: 20150531, end: 20150701

REACTIONS (2)
  - Menorrhagia [None]
  - Depression [None]

NARRATIVE: CASE EVENT DATE: 20160101
